FAERS Safety Report 15200952 (Version 1)
Quarter: 2018Q3

REPORT INFORMATION
  Report Type: Spontaneous
  Country: US (occurrence: US)
  Receive Date: 20180726
  Receipt Date: 20180726
  Transmission Date: 20181010
  Serious: No
  Sender: FDA-Public Use
  Company Number: US-BEH-2018093031

PATIENT
  Sex: Female
  Weight: 74.83 kg

DRUGS (17)
  1. KETOROLAC [Concomitant]
     Active Substance: KETOROLAC\KETOROLAC TROMETHAMINE
  2. TOLTERODINE [Concomitant]
     Active Substance: TOLTERODINE
  3. AMBIEN [Concomitant]
     Active Substance: ZOLPIDEM TARTRATE
  4. DEXILANT [Concomitant]
     Active Substance: DEXLANSOPRAZOLE
  5. BACLOFEN. [Concomitant]
     Active Substance: BACLOFEN
  6. HIZENTRA [Suspect]
     Active Substance: HUMAN IMMUNOGLOBULIN G
     Indication: IMMUNODEFICIENCY COMMON VARIABLE
     Dosage: 25 G, QOW
     Route: 058
     Dates: start: 20171214
  7. ACETAMINOPHEN. [Concomitant]
     Active Substance: ACETAMINOPHEN
  8. LAMICTAL [Concomitant]
     Active Substance: LAMOTRIGINE
  9. HIZENTRA [Suspect]
     Active Substance: HUMAN IMMUNOGLOBULIN G
     Dosage: 25 G, TOT
     Route: 058
  10. DIPHENHYDRAMINE. [Concomitant]
     Active Substance: DIPHENHYDRAMINE
  11. PROGESTERONE. [Concomitant]
     Active Substance: PROGESTERONE
  12. ESTRADIOL. [Concomitant]
     Active Substance: ESTRADIOL
  13. EPINEPHRINE. [Concomitant]
     Active Substance: EPINEPHRINE
  14. PREDNISONE. [Concomitant]
     Active Substance: PREDNISONE
  15. GABAPENTIN. [Concomitant]
     Active Substance: GABAPENTIN
  16. SAVELLA [Concomitant]
     Active Substance: MILNACIPRAN HYDROCHLORIDE
  17. ALLEGRA?D                          /01367401/ [Concomitant]

REACTIONS (2)
  - Rash macular [Unknown]
  - Pruritus [Unknown]
